FAERS Safety Report 9885797 (Version 2)
Quarter: 2014Q1

REPORT INFORMATION
  Report Type: Report from Study
  Country: CA (occurrence: CA)
  Receive Date: 20140210
  Receipt Date: 20140210
  Transmission Date: 20141002
  Serious: Yes (Death, Hospitalization)
  Sender: FDA-Public Use
  Company Number: CA-BRISTOL-MYERS SQUIBB COMPANY-18715128

PATIENT
  Age: 78 Year
  Sex: Female

DRUGS (8)
  1. METHOTREXATE [Suspect]
     Route: 048
  2. FOLIC ACID [Concomitant]
  3. CALCIUM [Concomitant]
  4. VITAMIN D [Concomitant]
  5. TYLENOL [Concomitant]
  6. TYLENOL ARTHRITIS [Concomitant]
  7. CORTISONE [Concomitant]
  8. ORENCIA [Suspect]
     Indication: RHEUMATOID ARTHRITIS
     Dosage: DRUG INTUPD:12AUG13, 05MAR13 EXP DATE:SEP13,3C83972-SEP2015?3H65580, JUL2016, 11NOV13 LAST DOSE
     Dates: start: 20100610

REACTIONS (7)
  - Death [Fatal]
  - Urinary tract infection [Unknown]
  - General physical health deterioration [Unknown]
  - Hypertension [Unknown]
  - Anaemia [Unknown]
  - Urine abnormality [Not Recovered/Not Resolved]
  - Heart rate increased [Unknown]
